FAERS Safety Report 9772927 (Version 1)
Quarter: 2013Q4

REPORT INFORMATION
  Report Type: Spontaneous
  Country: US (occurrence: US)
  Receive Date: 20131219
  Receipt Date: 20131219
  Transmission Date: 20140711
  Serious: Yes (Hospitalization, Other)
  Sender: FDA-Public Use
  Company Number: US-TEVA-451931USA

PATIENT
  Sex: Female

DRUGS (1)
  1. CLONAZEPAM [Suspect]

REACTIONS (5)
  - Myocardial infarction [Unknown]
  - Vascular graft [Unknown]
  - Parkinson^s disease [Unknown]
  - Arteriosclerosis [Unknown]
  - Blood cholesterol increased [Unknown]
